FAERS Safety Report 8544903-5 (Version None)
Quarter: 2012Q3

REPORT INFORMATION
  Report Type: 
  Country: None (occurrence: None)
  Receive Date: 20120727
  Receipt Date: 20120716
  Transmission Date: 20120928
  Serious: Yes (Hospitalization)
  Sender: FDA-Public Use
  Company Number: FR-BRISTOL-MYERS SQUIBB COMPANY-16802548

PATIENT
  Age: 43 Year
  Sex: Female
  Weight: 83 kg

DRUGS (20)
  1. ATORVASTATIN [Suspect]
     Route: 048
     Dates: start: 20120115, end: 20120118
  2. XATRAL LP [Suspect]
     Dosage: STRNGTH:10MG PROLONGED RELEASE TABS
     Route: 048
     Dates: start: 20120121
  3. SULFARLEM [Concomitant]
  4. ACAMPROSATE CALCIUM [Concomitant]
  5. GLUCOPHAGE [Suspect]
     Dosage: STRENGTH 850 MG
     Route: 048
  6. LITHIUM CARBONATE [Concomitant]
  7. PAROXETINE [Suspect]
     Dates: end: 20111118
  8. SEROQUEL [Suspect]
     Dosage: STRENGTH 300MG,PROLONGED RELEASE TAB
     Route: 048
     Dates: start: 20120104, end: 20120129
  9. CORDARONE [Suspect]
     Indication: ATRIAL FIBRILLATION
     Dosage: STRENGTH:200MG
     Route: 048
     Dates: start: 20111201, end: 20120125
  10. LEPTICUR [Concomitant]
  11. VENTOLIN [Concomitant]
  12. THERALENE [Concomitant]
  13. DEPAMIDE [Suspect]
     Dosage: STRENGTH:300MG,TABS
     Route: 048
     Dates: end: 20111118
  14. TERCIAN [Suspect]
     Dosage: STRENGTH:100MG
     Route: 048
     Dates: end: 20111118
  15. STILNOX [Suspect]
     Dosage: 10 MG TABS
     Route: 048
     Dates: end: 20111118
  16. EUPRESSYL [Suspect]
     Dosage: 60 MG CAPS
     Route: 048
     Dates: start: 20120114
  17. FLUTICASONE PROPIONATE/SALMETEROL [Concomitant]
  18. RABEPRAZOLE SODIUM [Suspect]
     Dosage: STRENGTH: 20MG TABS
     Route: 048
  19. VALIUM [Concomitant]
  20. LYRICA [Concomitant]

REACTIONS (2)
  - CHOLESTASIS [None]
  - CYTOLYTIC HEPATITIS [None]
